FAERS Safety Report 5778109-X (Version None)
Quarter: 2008Q2

REPORT INFORMATION
  Report Type: 
  Country: None (occurrence: None)
  Receive Date: 20080617
  Receipt Date: 20080617
  Transmission Date: 20081010
  Serious: No
  Sender: FDA-Public Use
  Company Number: None

PATIENT
  Age: 4 Year
  Sex: Female
  Weight: 14.0615 kg

DRUGS (4)
  1. SINGULAIR [Suspect]
     Indication: ASTHMA
     Dosage: ONE PILL DAILY PO
     Route: 048
     Dates: start: 20050923, end: 20080323
  2. SINGULAIR [Suspect]
     Indication: HYPERSENSITIVITY
     Dosage: ONE PILL DAILY PO
     Route: 048
     Dates: start: 20050923, end: 20080323
  3. PULMICORT [Concomitant]
  4. XOPENEX [Concomitant]

REACTIONS (3)
  - CRYING [None]
  - DEPRESSION [None]
  - LETHARGY [None]
